FAERS Safety Report 18998051 (Version 1)
Quarter: 2021Q1

REPORT INFORMATION
  Report Type: Spontaneous
  Country: US (occurrence: US)
  Receive Date: 20210311
  Receipt Date: 20210311
  Transmission Date: 20210420
  Serious: Yes (Other)
  Sender: FDA-Public Use
  Company Number: US-TEVA-2021-US-1887803

PATIENT
  Sex: Male

DRUGS (13)
  1. CARBOPLATIN. [Suspect]
     Active Substance: CARBOPLATIN
     Indication: HODGKIN^S DISEASE
     Dosage: RECEIVED 2 CYCLES OF ICE COMPRISING IFOSFAMIDE, CARBOPLATIN AND ETOPOSIDE
     Route: 065
  2. IFOSFAMIDE. [Suspect]
     Active Substance: IFOSFAMIDE
     Indication: HODGKIN^S DISEASE
     Dosage: RECEIVED 2 CYCLES OF ICE COMPRISING IFOSFAMIDE, CARBOPLATIN AND ETOPOSIDE
     Route: 065
  3. BRENTUXIMAB [Suspect]
     Active Substance: BRENTUXIMAB VEDOTIN
     Indication: HODGKIN^S DISEASE
     Dosage: RECEIVED 6 CYCLES
     Route: 065
  4. EMTRICITABINE [Concomitant]
     Active Substance: EMTRICITABINE
     Indication: HIV INFECTION
     Route: 065
  5. TENOFOVIR [Concomitant]
     Active Substance: TENOFOVIR
     Indication: HIV INFECTION
     Route: 065
  6. GEMCITABINE. [Suspect]
     Active Substance: GEMCITABINE
     Indication: HODGKIN^S DISEASE
     Dosage: RECEIVED ALONG WITH CYCLES 4?6 OF BRENTUXIMAB VEDOTIN
     Route: 065
  7. PROCARBAZINE [Suspect]
     Active Substance: PROCARBAZINE
     Indication: HODGKIN^S DISEASE
     Dosage: RECEIVED 6 CYCLES OF COPP COMPRISING CYCLOPHOSPHAMIDE, VINCRISTINE, PROCARBAZINE AND PREDNISONE
     Route: 065
  8. NIVOLUMAB [Suspect]
     Active Substance: NIVOLUMAB
     Indication: HODGKIN^S DISEASE
     Dosage: 250MG EVERY 2 WEEKS
     Route: 065
  9. EFAVIRENZ. [Concomitant]
     Active Substance: EFAVIRENZ
     Indication: HIV INFECTION
     Route: 065
  10. PREDNISONE. [Suspect]
     Active Substance: PREDNISONE
     Indication: HODGKIN^S DISEASE
     Dosage: RECEIVED 6 CYCLES OF COPP COMPRISING CYCLOPHOSPHAMIDE, VINCRISTINE, PROCARBAZINE AND PREDNISONE
     Route: 065
  11. CYCLOPHOSPHAMIDE. [Suspect]
     Active Substance: CYCLOPHOSPHAMIDE
     Indication: HODGKIN^S DISEASE
     Dosage: RECEIVED 6 CYCLES OF COPP COMPRISING CYCLOPHOSPHAMIDE, VINCRISTINE, PROCARBAZINE AND PREDNISONE
     Route: 065
  12. ETOPOSIDE. [Suspect]
     Active Substance: ETOPOSIDE
     Indication: HODGKIN^S DISEASE
     Dosage: RECEIVED 2 CYCLES OF ICE COMPRISING IFOSFAMIDE, CARBOPLATIN AND ETOPOSIDE
     Route: 065
  13. ONCOVIN [Suspect]
     Active Substance: VINCRISTINE SULFATE
     Indication: HODGKIN^S DISEASE
     Dosage: RECEIVED 6 CYCLES OF COPP COMPRISING CYCLOPHOSPHAMIDE, VINCRISTINE, PROCARBAZINE AND PREDNISONE
     Route: 065

REACTIONS (3)
  - Diabetes mellitus [Not Recovered/Not Resolved]
  - Autoimmune disorder [Not Recovered/Not Resolved]
  - Drug ineffective [Unknown]
